FAERS Safety Report 5763461-1 (Version None)
Quarter: 2008Q2

REPORT INFORMATION
  Report Type: 
  Country: None (occurrence: None)
  Receive Date: 20080605
  Receipt Date: 20080520
  Transmission Date: 20081010
  Serious: Yes (Hospitalization)
  Sender: FDA-Public Use
  Company Number: 2008001183

PATIENT
  Sex: Male

DRUGS (2)
  1. TARCEVA [Suspect]
     Dosage: ORAL
     Route: 048
  2. MEGACE [Concomitant]

REACTIONS (2)
  - BLOOD POTASSIUM DECREASED [None]
  - VENTRICULAR FIBRILLATION [None]
